FAERS Safety Report 23694474 (Version 3)
Quarter: 2024Q4

REPORT INFORMATION
  Report Type: Spontaneous
  Country: JP (occurrence: JP)
  Receive Date: 20240401
  Receipt Date: 20241114
  Transmission Date: 20250115
  Serious: Yes (Other)
  Sender: BRISTOL-MYERS SQUIBB COMPANY
  Company Number: JP-BRISTOL-MYERS SQUIBB COMPANY-2024-046924

PATIENT
  Age: 73 Year
  Sex: Male

DRUGS (3)
  1. BREYANZI [Suspect]
     Active Substance: LISOCABTAGENE MARALEUCEL
     Indication: Diffuse large B-cell lymphoma refractory
     Dosage: 50 X 106 CD8+ AND 50 X 106 CD4+ CAR-POSITIVE VIABLE CELLS CAR+ T CELLS
     Route: 042
  2. FLUDARABINE [Concomitant]
     Active Substance: FLUDARABINE PHOSPHATE
     Indication: Diffuse large B-cell lymphoma
  3. CYCLOPHOSPHAMIDE [Concomitant]
     Active Substance: CYCLOPHOSPHAMIDE
     Indication: Diffuse large B-cell lymphoma

REACTIONS (4)
  - Cytokine release syndrome [Recovering/Resolving]
  - Pharyngeal oedema [Recovering/Resolving]
  - Salivary gland enlargement [Recovering/Resolving]
  - Parotid gland enlargement [Recovering/Resolving]
